FAERS Safety Report 13918537 (Version 1)
Quarter: 2017Q3

REPORT INFORMATION
  Report Type: Spontaneous
  Country: US (occurrence: US)
  Receive Date: 20170829
  Receipt Date: 20170829
  Transmission Date: 20171127
  Serious: Yes (Other)
  Sender: FDA-Public Use
  Company Number: US-EXELIXIS-CABO-17010317

PATIENT
  Age: 57 Year
  Sex: Male

DRUGS (1)
  1. CABOMETYX [Suspect]
     Active Substance: CABOZANTINIB S-MALATE
     Indication: METASTATIC RENAL CELL CARCINOMA
     Dosage: 60 MG, QD
     Route: 048

REACTIONS (4)
  - Performance status decreased [Recovering/Resolving]
  - Recall phenomenon [Recovered/Resolved]
  - Skin ulcer [Recovered/Resolved]
  - Odynophagia [Unknown]
